FAERS Safety Report 17746628 (Version 3)
Quarter: 2020Q3

REPORT INFORMATION
  Report Type: Report from Study
  Country: US (occurrence: US)
  Receive Date: 20200505
  Receipt Date: 20200730
  Transmission Date: 20201102
  Serious: Yes (Hospitalization)
  Sender: FDA-Public Use
  Company Number: US-BAUSCH-BL-2020-013199

PATIENT
  Age: 46 Year
  Sex: Male
  Weight: 99.88 kg

DRUGS (3)
  1. XIFAXAN [Suspect]
     Active Substance: RIFAXIMIN
     Indication: HEPATIC ENCEPHALOPATHY
     Dosage: PRESCRIBED ON 13/MAR/2020.
     Route: 048
     Dates: start: 2020, end: 2020
  2. LACTULOSE. [Concomitant]
     Active Substance: LACTULOSE
     Indication: PRODUCT USED FOR UNKNOWN INDICATION
     Route: 065
  3. XIFAXAN [Suspect]
     Active Substance: RIFAXIMIN
     Dosage: CONTINUED FROM SECOND HOSPITALISATION ON 14/MAY/2020
     Route: 048
     Dates: start: 2020

REACTIONS (3)
  - Therapy interrupted [Unknown]
  - Gastrointestinal haemorrhage [Recovered/Resolved]
  - Confusional state [Unknown]

NARRATIVE: CASE EVENT DATE: 2020
